FAERS Safety Report 6372034-1 (Version None)
Quarter: 2009Q3

REPORT INFORMATION
  Report Type: 
  Country: None (occurrence: None)
  Receive Date: 20090917
  Receipt Date: 20090904
  Transmission Date: 20100115
  Serious: Yes (Death)
  Sender: FDA-Public Use
  Company Number: ADR19272009

PATIENT
  Sex: Male

DRUGS (22)
  1. SALBUTAMOL (MFR: UNKNOWN) [Suspect]
     Dosage: UNKNOWN;RESPIRATORY USE
     Route: 055
  2. ASPIRIN [Concomitant]
  3. ATORVASTATIN [Concomitant]
  4. BECLOMETHASONE DIPROPIONATE [Concomitant]
  5. COMBIVENT METERED AEROSOL [Concomitant]
  6. DEXMETHASONE [Concomitant]
  7. DILTIAZEM [Concomitant]
  8. DOTHIEPIN HYDROCHLORIDE [Concomitant]
  9. FRUMIL [Concomitant]
  10. FUROSEMIDE [Concomitant]
  11. GAVISCON [Concomitant]
  12. LACTULOSE [Concomitant]
  13. LANSOPRAZOLE [Concomitant]
  14. METOCLOPRAMIDE [Concomitant]
  15. NITROLINGUAL [Concomitant]
  16. NOZINAN [Concomitant]
  17. OXYCODONE HCL [Concomitant]
  18. OXYGEN [Concomitant]
  19. SPRIVA 18 MCG INHALATION POWDER HARD CAPSULE [Concomitant]
  20. SPRINOLACTONE [Concomitant]
  21. SYMBICORT [Concomitant]
  22. TEMAZEPAM [Concomitant]

REACTIONS (2)
  - LUNG NEOPLASM MALIGNANT [None]
  - MESOTHELIOMA [None]
